FAERS Safety Report 10101403 (Version 2)
Quarter: 2014Q3

REPORT INFORMATION
  Report Type: Spontaneous
  Country: CA (occurrence: CA)
  Receive Date: 20140424
  Receipt Date: 20140902
  Transmission Date: 20150326
  Serious: Yes (Hospitalization)
  Sender: FDA-Public Use
  Company Number: CA-TARO PHARMACEUTICALS U.S.A., INC-2014SUN00899

PATIENT
  Age: 21 Year
  Sex: Male

DRUGS (3)
  1. TARO-CARBAMAZEPINE ORAL SUSPENSION 100 MG/5 ML [Suspect]
     Active Substance: CARBAMAZEPINE
     Indication: CONVULSION
     Dosage: 200 MG, TID
     Route: 048
     Dates: start: 2011
  2. DIVALPROEX [Concomitant]
     Active Substance: DIVALPROEX SODIUM
     Dosage: 250MG IN MORNING AND 500 MG AT NIGHT
     Route: 065
     Dates: end: 2012
  3. LAMOTRIGINE. [Concomitant]
     Active Substance: LAMOTRIGINE
     Dosage: 150 MG, BID
     Route: 065
     Dates: start: 2012

REACTIONS (5)
  - Product physical consistency issue [Unknown]
  - Incorrect dose administered [Unknown]
  - Generalised tonic-clonic seizure [Recovered/Resolved]
  - Anticonvulsant drug level decreased [Recovered/Resolved]
  - Drug dispensing error [Unknown]
